FAERS Safety Report 9928750 (Version 2)
Quarter: 2014Q2

REPORT INFORMATION
  Report Type: Spontaneous
  Country: US (occurrence: None)
  Receive Date: 20140225
  Receipt Date: 20140520
  Transmission Date: 20141212
  Serious: Yes (Other)
  Sender: FDA-Public Use
  Company Number: 2014-US-001751

PATIENT
  Age: 55 Year
  Sex: Female

DRUGS (2)
  1. XYREM (SODIUM OXYBATE) ORAL SOLUTION, 500 MG/ML [Suspect]
     Indication: NARCOLEPSY
     Route: 048
     Dates: start: 200305, end: 2003
  2. XYREM (SODIUM OXYBATE) ORAL SOLUTION, 500 MG/ML [Suspect]
     Indication: CATAPLEXY
     Route: 048
     Dates: start: 200305, end: 2003

REACTIONS (5)
  - Facial bones fracture [None]
  - Lower limb fracture [None]
  - Foot fracture [None]
  - Hand fracture [None]
  - Fall [None]
